FAERS Safety Report 8818798 (Version 1)
Quarter: 2012Q4

REPORT INFORMATION
  Report Type: Spontaneous
  Country: US (occurrence: None)
  Receive Date: 20121004
  Receipt Date: 20121004
  Transmission Date: 20130627
  Serious: Yes (Life-Threatening, Hospitalization, Disabling, Other)
  Sender: FDA-Public Use
  Company Number: None

PATIENT
  Age: 74 Year
  Sex: Female
  Weight: 62.14 kg

DRUGS (1)
  1. RECLAST [Suspect]
     Indication: OSTEOPOROSIS
     Dosage: One infusion yearly
     Dates: start: 20120326

REACTIONS (7)
  - Influenza like illness [None]
  - Joint swelling [None]
  - Arthralgia [None]
  - Erythema [None]
  - Gait disturbance [None]
  - Gastritis [None]
  - Anxiety [None]
